FAERS Safety Report 14086636 (Version 1)
Quarter: 2017Q4

REPORT INFORMATION
  Report Type: Spontaneous
  Country: CH (occurrence: CH)
  Receive Date: 20171013
  Receipt Date: 20171013
  Transmission Date: 20180321
  Serious: Yes (Hospitalization)
  Sender: FDA-Public Use
  Company Number: CH-SA-2017SA193193

PATIENT
  Age: 57 Year
  Sex: Male
  Weight: 89 kg

DRUGS (16)
  1. CRESTOR [Concomitant]
     Active Substance: ROSUVASTATIN CALCIUM
     Dosage: STRENGTH: 10 MG
     Route: 065
     Dates: start: 20170804
  2. RIFATER [Suspect]
     Active Substance: ISONIAZID\PYRAZINAMIDE\RIFAMPIN
     Route: 048
     Dates: start: 20170819, end: 20170920
  3. VITAMIN B6 [Concomitant]
     Active Substance: PYRIDOXINE HYDROCHLORIDE
     Dosage: STRENGTH: 40 MG
     Route: 065
     Dates: start: 20170728
  4. CONDROSULF [Concomitant]
     Active Substance: SODIUM CHONDROITIN SULFATE
     Dosage: STRENGTH: 800 MG
     Route: 065
     Dates: start: 201707
  5. ASPIRIN CARDIO [Interacting]
     Active Substance: ASPIRIN
     Route: 065
     Dates: start: 20170905
  6. CO-APROVEL [Concomitant]
     Active Substance: HYDROCHLOROTHIAZIDE\IRBESARTAN
     Dosage: STRENGTH: 300 MG
     Route: 065
  7. VITAMIN D3 [Concomitant]
     Active Substance: CHOLECALCIFEROL
     Dosage: FORM: LIQUID DROP?STRENGTH: 800 IU
     Route: 065
     Dates: start: 20170728
  8. CONCOR [Concomitant]
     Active Substance: BISOPROLOL FUMARATE
     Dosage: STREMGTH: 2.5 MG
     Route: 065
     Dates: start: 20170808
  9. NOVORAPID [Concomitant]
     Active Substance: INSULIN ASPART
     Dosage: DOAGE FORM: VIALS
     Route: 065
  10. RIMACTAZID [Concomitant]
     Active Substance: ISONIAZID\RIFAMPIN
     Route: 065
  11. TRESIBA [Concomitant]
     Active Substance: INSULIN DEGLUDEC
     Dosage: STRENGTH: 48 IU
     Route: 065
     Dates: start: 201707
  12. PARACETAMOL [Concomitant]
     Active Substance: ACETAMINOPHEN
     Route: 065
  13. PLAVIX [Interacting]
     Active Substance: CLOPIDOGREL BISULFATE
     Route: 048
     Dates: start: 20170905, end: 20170919
  14. RIMSTAR [Concomitant]
     Active Substance: ETHAMBUTOL\ISONIAZID\PYRAZINAMIDE\RIFAMYCIN
     Route: 065
     Dates: start: 20170627
  15. FLEXTOUCH/INSULIN DETEMIR [Concomitant]
     Dates: start: 201707
  16. EZETROL [Concomitant]
     Active Substance: EZETIMIBE
     Dosage: STRENGTH: 10 MG
     Route: 065
     Dates: start: 201707

REACTIONS (4)
  - Drug interaction [Recovered/Resolved]
  - Contraindicated product administered [Unknown]
  - Haemoptysis [Recovered/Resolved]
  - Potentiating drug interaction [Recovered/Resolved]

NARRATIVE: CASE EVENT DATE: 20170905
